FAERS Safety Report 10173287 (Version 1)
Quarter: 2014Q2

REPORT INFORMATION
  Report Type: Spontaneous
  Country: CN (occurrence: CN)
  Receive Date: 20140515
  Receipt Date: 20140515
  Transmission Date: 20141212
  Serious: Yes (Other)
  Sender: FDA-Public Use
  Company Number: CN-BAXTER-2014BAX023347

PATIENT
  Age: 53 Year
  Sex: Male
  Weight: 44 kg

DRUGS (2)
  1. 20% MANNITOL INJECTION [Suspect]
     Indication: OEDEMA
     Dosage: RECEIVED ONLY ONE DOSE ON DAY ONE
     Route: 041
     Dates: start: 20130710, end: 20130711
  2. 20% MANNITOL INJECTION [Suspect]
     Route: 041
     Dates: start: 20130711, end: 20130711

REACTIONS (2)
  - Pruritus [Recovered/Resolved]
  - Erythema [Recovered/Resolved]
